FAERS Safety Report 12854392 (Version 1)
Quarter: 2016Q4

REPORT INFORMATION
  Report Type: Spontaneous
  Country: US (occurrence: US)
  Receive Date: 20161017
  Receipt Date: 20161017
  Transmission Date: 20170207
  Serious: No
  Sender: FDA-Public Use
  Company Number: US-GALDERMA-US16005226

PATIENT
  Age: 44 Year
  Sex: Female

DRUGS (7)
  1. METRONIDAZOLE CREAM (METRONIDAZOLE) 0.75% [Concomitant]
     Active Substance: METRONIDAZOLE
     Indication: ROSACEA
     Dosage: 0.75%
     Route: 061
  2. AQUAPHOR MOISTURIZER [Concomitant]
     Indication: DRY SKIN PROPHYLAXIS
     Route: 061
  3. METRONIDAZOLE GEL, 1% [Concomitant]
     Active Substance: METRONIDAZOLE
     Indication: ROSACEA
     Dosage: 1%
     Route: 061
  4. ULTA MD SCUNSCREEN SPF 30 [Concomitant]
     Indication: PROPHYLAXIS AGAINST SOLAR RADIATION
     Route: 061
  5. SOOLANTRA [Suspect]
     Active Substance: IVERMECTIN
     Indication: ROSACEA
     Route: 061
     Dates: start: 20160629
  6. CLINIQUE GENTLE CLEANSING FOAM WASH [Concomitant]
     Indication: THERAPEUTIC SKIN CARE TOPICAL
     Route: 061
  7. NEUTROGENA SALICYLIC ACID 2% ASTRINGENT [Concomitant]
     Indication: ACNE
     Route: 061

REACTIONS (2)
  - Rosacea [Recovering/Resolving]
  - Off label use [Recovered/Resolved]

NARRATIVE: CASE EVENT DATE: 2016
